FAERS Safety Report 23628222 (Version 1)
Quarter: 2024Q1

REPORT INFORMATION
  Report Type: Spontaneous
  Country: NL (occurrence: NL)
  Receive Date: 20240313
  Receipt Date: 20240313
  Transmission Date: 20240410
  Serious: Yes (Other)
  Sender: FDA-Public Use
  Company Number: None

PATIENT
  Age: 21 Year
  Sex: Female
  Weight: 68 kg

DRUGS (1)
  1. ISOTRETINOIN [Suspect]
     Active Substance: ISOTRETINOIN
     Indication: Acne
     Dosage: 20 MILLIGRAM, QD, 1X PER DAY 1 PIECE
     Route: 065
     Dates: start: 20221101, end: 20231115

REACTIONS (3)
  - Erythema multiforme [Recovered/Resolved]
  - Withdrawal syndrome [Recovered/Resolved]
  - Erythema migrans [Recovered/Resolved]
